FAERS Safety Report 16386613 (Version 2)
Quarter: 2021Q1

REPORT INFORMATION
  Report Type: Spontaneous
  Country: US (occurrence: US)
  Receive Date: 20190604
  Receipt Date: 20210328
  Transmission Date: 20210419
  Serious: Yes (Death, Hospitalization)
  Sender: FDA-Public Use
  Company Number: US-JNJFOC-20190529669

PATIENT

DRUGS (1)
  1. BENADRYL [Suspect]
     Active Substance: DIPHENHYDRAMINE HYDROCHLORIDE
     Indication: PRODUCT USED FOR UNKNOWN INDICATION
     Route: 065

REACTIONS (16)
  - Hypotension [Fatal]
  - Seizure [Fatal]
  - Respiratory failure [Fatal]
  - Coma [Fatal]
  - Arrhythmia [Fatal]
  - Delirium [Fatal]
  - Drug abuse [Fatal]
  - Intentional product misuse [Fatal]
  - Acidosis [Fatal]
  - Status epilepticus [Fatal]
  - Hallucination [Fatal]
  - Overdose [Fatal]
  - Suicide attempt [Fatal]
  - Shock [Fatal]
  - Rhabdomyolysis [Fatal]
  - Cardiac arrest [Fatal]
